FAERS Safety Report 22122080 (Version 1)
Quarter: 2023Q1

REPORT INFORMATION
  Report Type: Spontaneous
  Country: US (occurrence: None)
  Receive Date: 20230321
  Receipt Date: 20230321
  Transmission Date: 20230418
  Serious: No
  Sender: FDA-Public Use
  Company Number: None

PATIENT
  Age: 79 Year
  Sex: Female
  Weight: 72.57 kg

DRUGS (5)
  1. SYNTHROID [Suspect]
     Active Substance: LEVOTHYROXINE SODIUM
  2. ATORVASTATIN [Concomitant]
  3. AMLODIPINE [Concomitant]
  4. vit. b12 [Concomitant]
  5. cal. vit d [Concomitant]

REACTIONS (7)
  - Product use issue [None]
  - Pain in extremity [None]
  - Symptom recurrence [None]
  - Trigger finger [None]
  - Muscle spasms [None]
  - Therapy cessation [None]
  - Therapeutic response unexpected [None]

NARRATIVE: CASE EVENT DATE: 20230303
